FAERS Safety Report 24586706 (Version 2)
Quarter: 2025Q1

REPORT INFORMATION
  Report Type: Spontaneous
  Country: US (occurrence: US)
  Receive Date: 20241107
  Receipt Date: 20250117
  Transmission Date: 20250408
  Serious: No
  Sender: ABBVIE
  Company Number: US-APIL-2311845US

PATIENT
  Sex: Male

DRUGS (1)
  1. PREDNISOLONE ACETATE [Suspect]
     Active Substance: PREDNISOLONE ACETATE
     Indication: Product used for unknown indication
     Route: 047

REACTIONS (1)
  - No adverse event [Unknown]
